FAERS Safety Report 6306115-5 (Version None)
Quarter: 2009Q3

REPORT INFORMATION
  Report Type: 
  Country: None (occurrence: None)
  Receive Date: 20090812
  Receipt Date: 20090805
  Transmission Date: 20100115
  Serious: Yes (Hospitalization)
  Sender: FDA-Public Use
  Company Number: CA-BAYER-200927556NA

PATIENT
  Age: 49 Year
  Sex: Female

DRUGS (4)
  1. SORAFENIB [Suspect]
     Indication: BREAST CANCER METASTATIC
     Dosage: TOTAL DAILY DOSE: 800 MG  UNIT DOSE: 200 MG
     Route: 048
     Dates: start: 20090210, end: 20090717
  2. NAVELBINE [Suspect]
     Indication: BREAST CANCER METASTATIC
     Dosage: DAYS 1 AND 8
     Route: 042
     Dates: start: 20090210, end: 20090714
  3. CALCIUM [Concomitant]
  4. NEUPOGEN [Concomitant]

REACTIONS (1)
  - ENTERITIS [None]
